FAERS Safety Report 4365681-X (Version None)
Quarter: 2004Q2

REPORT INFORMATION
  Report Type: 
  Country: None (occurrence: None)
  Receive Date: 20040520
  Receipt Date: 20040504
  Transmission Date: 20050107
  Serious: Yes (Other)
  Sender: FDA-Public Use
  Company Number: 206522

PATIENT
  Sex: Male

DRUGS (4)
  1. AVASTIN [Suspect]
     Indication: COLORECTAL CANCER METASTATIC
     Dosage: INTRAVENOUS
     Route: 042
     Dates: start: 20040430
  2. CAPECIABINE (CAPECITABINE) [Concomitant]
  3. OXALIPLATIN [Concomitant]
  4. COLORECTAL CANCER METASTATIC [Concomitant]

REACTIONS (1)
  - HYPOGLYCAEMIA [None]
